FAERS Safety Report 5881385-6 (Version None)
Quarter: 2008Q3

REPORT INFORMATION
  Report Type: 
  Country: None (occurrence: None)
  Receive Date: 20080912
  Receipt Date: 20080627
  Transmission Date: 20090109
  Serious: No
  Sender: FDA-Public Use
  Company Number: US-ABBOTT-08P-163-0459931-00

PATIENT
  Sex: Male
  Weight: 107 kg

DRUGS (3)
  1. HUMIRA [Suspect]
     Indication: PSORIASIS
     Dosage: DISCARDED
     Route: 058
     Dates: start: 20080503
  2. WARFARIN SODIUM [Concomitant]
     Indication: CARDIAC DISORDER
     Route: 048
  3. ESOMEPRAZOLE MAGNESIUM [Concomitant]
     Indication: GASTROOESOPHAGEAL REFLUX DISEASE
     Route: 048

REACTIONS (2)
  - IMPAIRED HEALING [None]
  - LACERATION [None]
